FAERS Safety Report 7931995-7 (Version None)
Quarter: 2011Q4

REPORT INFORMATION
  Report Type: 
  Country: None (occurrence: None)
  Receive Date: 20111121
  Receipt Date: 20110811
  Transmission Date: 20120403
  Serious: No
  Sender: FDA-Public Use
  Company Number: US-BAYER-2011-073667

PATIENT
  Age: 81 Year
  Sex: Female
  Weight: 57 kg

DRUGS (12)
  1. MULTIVITAMINS WITH MINERALS [MULTIVITAMINS WITH MINERALS] [Concomitant]
  2. CHONDROITIN [Concomitant]
  3. FISH OIL [Concomitant]
  4. ALEVE (CAPLET) [Suspect]
     Indication: ANALGESIC THERAPY
     Dosage: 2 DF, QD
     Route: 048
     Dates: start: 20110810
  5. RAMIPRIL [Concomitant]
  6. GLUCOSAMINE [Concomitant]
  7. PRAVASTATIN [Concomitant]
  8. HYDROCHLOROTHIAZIDE [Concomitant]
  9. ASPIRIN [Concomitant]
     Dosage: 1 DF, QD
  10. PLAVIX [Concomitant]
  11. NEXIUM [Concomitant]
  12. FELODIPINE [Concomitant]

REACTIONS (1)
  - THROAT IRRITATION [None]
